FAERS Safety Report 9571151 (Version 1)
Quarter: 2013Q3

REPORT INFORMATION
  Report Type: Spontaneous
  Country: US (occurrence: None)
  Receive Date: 20130927
  Receipt Date: 20130927
  Transmission Date: 20140515
  Serious: Yes (Hospitalization)
  Sender: FDA-Public Use
  Company Number: None

PATIENT
  Age: 34 Year
  Sex: Male
  Weight: 71.4 kg

DRUGS (3)
  1. TRAMADOL [Suspect]
     Indication: SURGERY
     Route: 048
     Dates: start: 20130829, end: 20130830
  2. TRAMADOL [Suspect]
     Indication: PAIN
     Route: 048
     Dates: start: 20130829, end: 20130830
  3. GENTAMICIN [Suspect]
     Route: 030
     Dates: start: 20130829, end: 20130829

REACTIONS (11)
  - Grand mal convulsion [None]
  - Fall [None]
  - Comminuted fracture [None]
  - Thoracic vertebral fracture [None]
  - Lumbar vertebral fracture [None]
  - Bone fragmentation [None]
  - Lumbar vertebral fracture [None]
  - Lumbar vertebral fracture [None]
  - Drug screen positive [None]
  - Pyrexia [None]
  - Convulsive threshold lowered [None]
